FAERS Safety Report 9290430 (Version 1)
Quarter: 2012Q4

REPORT INFORMATION
  Report Type: Spontaneous
  Country: JP (occurrence: None)
  Receive Date: 20121004
  Receipt Date: 20121004
  Transmission Date: 20130627
  Serious: Yes (Hospitalization, Other)
  Sender: FDA-Public Use
  Company Number: JP-2012-3306

PATIENT
  Age: 61 Year
  Sex: Male

DRUGS (2)
  1. NAVELBINE (VINORELBINE TARTRATE) INFUSION [Suspect]
     Indication: LUNG ADENOCARCINOMA
     Route: 042
  2. CISPLATIN (CISPLATIN) [Concomitant]

REACTIONS (3)
  - Duodenal perforation [None]
  - Peritonitis [None]
  - Haematotoxicity [None]
